FAERS Safety Report 9056521 (Version 1)
Quarter: 2013Q1

REPORT INFORMATION
  Report Type: Spontaneous
  Country: US (occurrence: US)
  Receive Date: 20130204
  Receipt Date: 20130204
  Transmission Date: 20140127
  Serious: Yes (Other)
  Sender: FDA-Public Use
  Company Number: US-GLAXOSMITHKLINE-A1010093A

PATIENT
  Age: 58 Year
  Sex: Female

DRUGS (15)
  1. AVANDIA [Suspect]
     Indication: TYPE 2 DIABETES MELLITUS
     Dosage: 3MG PER DAY
     Route: 048
     Dates: start: 2007
  2. VIVELLE PATCH [Concomitant]
  3. LIPITOR [Concomitant]
  4. UNKNOWN MEDICATION [Concomitant]
  5. PREVACID [Concomitant]
  6. HCTZ [Concomitant]
  7. JANUVIA [Concomitant]
  8. VIT D [Concomitant]
  9. SKELAXIN [Concomitant]
  10. LYRICA [Concomitant]
  11. NORCO [Concomitant]
  12. TOPOMAX [Concomitant]
  13. SOMA [Concomitant]
  14. AMBIEN [Concomitant]
  15. LIDODERM PATCH [Concomitant]

REACTIONS (3)
  - Thyroid mass [Recovering/Resolving]
  - Myocardial infarction [Unknown]
  - Syncope [Unknown]
